FAERS Safety Report 18916233 (Version 1)
Quarter: 2021Q1

REPORT INFORMATION
  Report Type: Spontaneous
  Country: US (occurrence: US)
  Receive Date: 20210219
  Receipt Date: 20210219
  Transmission Date: 20210420
  Serious: Yes (Death, Other)
  Sender: FDA-Public Use
  Company Number: US-PURDUE PHARMA-USA-2021-0213786

PATIENT
  Age: 49 Year
  Sex: Male
  Weight: 300 kg

DRUGS (1)
  1. OXYCONTIN [Suspect]
     Active Substance: OXYCODONE HYDROCHLORIDE
     Indication: ARTHRALGIA
     Dosage: UNK
     Route: 048
     Dates: start: 201205, end: 201206

REACTIONS (1)
  - Death [Fatal]

NARRATIVE: CASE EVENT DATE: 20120615
